FAERS Safety Report 8967617 (Version 5)
Quarter: 2013Q1

REPORT INFORMATION
  Report Type: Spontaneous
  Country: US (occurrence: US)
  Receive Date: 20121217
  Receipt Date: 20130321
  Transmission Date: 20140127
  Serious: Yes (Other)
  Sender: FDA-Public Use
  Company Number: US-MERCK-1212USA004855

PATIENT
  Sex: Female
  Weight: 64.4 kg

DRUGS (11)
  1. RIBAVIRIN [Suspect]
     Indication: HEPATITIS C
     Dosage: 1 DF, QD
     Route: 048
     Dates: start: 19950407, end: 19960119
  2. RIBAVIRIN [Suspect]
     Dosage: UNK
     Route: 048
     Dates: start: 19961210, end: 19971210
  3. RIBAVIRIN [Suspect]
     Dosage: UNK
     Route: 048
     Dates: start: 19970627, end: 19980410
  4. RIBAVIRIN [Suspect]
     Dosage: UNK
     Dates: start: 19960607, end: 19970425
  5. RIBAVIRIN [Suspect]
     Dosage: UNK
  6. RIBAVIRIN [Suspect]
     Dosage: UNK
     Route: 048
     Dates: start: 20121116
  7. INTERFERON ALFA-2B [Suspect]
     Indication: HEPATITIS C
     Dosage: 1 DF, TIW
     Dates: start: 19950407, end: 19960119
  8. INTERFERON ALFA-2B [Suspect]
     Dosage: UNK
     Dates: start: 19961210, end: 19971210
  9. INTERFERON ALFA-2B [Suspect]
     Dosage: UNK
     Dates: start: 19970627, end: 19980410
  10. INTERFERON ALFA-2B [Suspect]
     Dosage: UNK
     Dates: start: 19960607, end: 19970425
  11. INTERFERON ALFA-2B [Suspect]
     Dosage: UNK
     Route: 048
     Dates: start: 20121116

REACTIONS (12)
  - Breast cancer [Unknown]
  - Disease recurrence [Unknown]
  - White blood cell count decreased [Unknown]
  - Fatigue [Unknown]
  - Abasia [Unknown]
  - Asthenia [Unknown]
  - Adverse event [Unknown]
  - Reproductive tract disorder [Unknown]
  - Irritability [Unknown]
  - Leukopenia [Unknown]
  - Weight decreased [Unknown]
  - Cough [Unknown]
